FAERS Safety Report 4358849-X (Version None)
Quarter: 2004Q2

REPORT INFORMATION
  Report Type: 
  Country: None (occurrence: None)
  Receive Date: 20040512
  Receipt Date: 20040503
  Transmission Date: 20050107
  Serious: Yes (Hospitalization, Other)
  Sender: FDA-Public Use
  Company Number: 2004013637

PATIENT
  Age: 7 Year
  Sex: Male

DRUGS (3)
  1. ZYRTEC [Suspect]
     Indication: HYPERSENSITIVITY
     Dosage: 10 MG (DAILY), ORAL
     Route: 048
     Dates: start: 20040217, end: 20040221
  2. SERETIDE MITE (FLUTICASONE PROPIONATE, SALMETEROL XINAFOATE) [Suspect]
     Indication: ASTHMA
     Dosage: 200 MCG (DAILY), INHALATION
     Route: 055
     Dates: start: 20040217, end: 20040221
  3. ALLERGENS, HOUSE DUST + MITE (ALLERGENS, HOUSE DUST + MITE) [Suspect]
     Indication: HYPERSENSITIVITY
     Dosage: 15 DROP, SUBLINGUAL
     Route: 060
     Dates: start: 20040217, end: 20040221

REACTIONS (2)
  - PETIT MAL EPILEPSY [None]
  - TRISMUS [None]
